FAERS Safety Report 8112701-2 (Version None)
Quarter: 2012Q1

REPORT INFORMATION
  Report Type: 
  Country: None (occurrence: None)
  Receive Date: 20120203
  Receipt Date: 20120202
  Transmission Date: 20120608
  Serious: No
  Sender: FDA-Public Use
  Company Number: US-PFIZER INC-2012029780

PATIENT
  Sex: Female
  Weight: 86.168 kg

DRUGS (26)
  1. CRESTOR [Concomitant]
     Dosage: 20 MG, UNK
  2. PLAVIX [Concomitant]
     Dosage: UNK
  3. PATANOL [Concomitant]
     Dosage: UNK
  4. CHANTIX [Suspect]
     Indication: SMOKING CESSATION THERAPY
     Dosage: 0.5 MG, 1X/DAY
     Route: 048
     Dates: start: 20090101, end: 20090101
  5. CLONAZEPAM [Concomitant]
     Dosage: 05 MG, UNK
  6. PRILOSEC [Concomitant]
     Dosage: 40 MG, UNK
  7. LANTUS [Concomitant]
     Dosage: UNK
  8. CALCIUM WITH VITAMIN D [Concomitant]
     Dosage: UNK
  9. HYDROCODONE [Concomitant]
     Dosage: 10 MG, UNK
  10. LOSARTAN [Concomitant]
     Dosage: 50 MG, UNK
  11. CHANTIX [Suspect]
     Dosage: UNK
     Route: 048
     Dates: end: 20110101
  12. LOMOTIL [Concomitant]
     Dosage: UNK
  13. LOVAZA [Concomitant]
     Dosage: 1 G, UNK
  14. DOXEPIN [Concomitant]
     Dosage: 10 MG, UNK
  15. CARVEDILOL [Concomitant]
     Dosage: UNK
  16. PAROXETINE [Concomitant]
     Dosage: 40 MG, UNK
  17. VITAMIN D [Concomitant]
     Dosage: 1025 MG, UNK
  18. ACETYLSALICYLIC ACID [Concomitant]
     Dosage: 81 MG, UNK
  19. NITROSTAT [Concomitant]
     Dosage: 0.4 MG, UNK
     Route: 060
  20. ADVAIR DISKUS 100/50 [Concomitant]
     Dosage: 250/50 MG, UNK
  21. VITAMIN B COMPLEX CAP [Concomitant]
     Dosage: 1000 MG, UNK
  22. VERAMYST [Concomitant]
     Dosage: UNK
     Route: 045
  23. AMLODIPINE [Concomitant]
     Dosage: 10 MG, UNK
  24. VITAMIN B COMPLEX CAP [Concomitant]
     Dosage: UNK
     Route: 060
  25. AMOXICILLIN [Concomitant]
     Dosage: 500 MG, UNK
  26. HUMALOG [Concomitant]
     Dosage: 100 MG, UNK

REACTIONS (1)
  - DRUG INEFFECTIVE [None]
